FAERS Safety Report 5947204-4 (Version None)
Quarter: 2008Q4

REPORT INFORMATION
  Report Type: 
  Country: None (occurrence: None)
  Receive Date: 20081110
  Receipt Date: 20081029
  Transmission Date: 20090506
  Serious: No
  Sender: FDA-Public Use
  Company Number: US-B.I. PHARMACEUTICALS,INC./RIDGEFIELD-2008-BP-16547BP

PATIENT
  Sex: Male

DRUGS (4)
  1. FLOMAX [Suspect]
     Indication: PROSTATIC DISORDER
     Dosage: .4MG
     Route: 048
     Dates: start: 20080301, end: 20081015
  2. FLOMAX [Suspect]
     Indication: DYSURIA
  3. FLUTAMIDE [Concomitant]
     Indication: BLOOD TESTOSTERONE ABNORMAL
  4. CHOLESTEROL MEDICATION [Concomitant]
     Indication: BLOOD CHOLESTEROL INCREASED

REACTIONS (3)
  - FLATULENCE [None]
  - PELVIC DISCOMFORT [None]
  - PERINEAL PAIN [None]
